FAERS Safety Report 14881659 (Version 1)
Quarter: 2018Q2

REPORT INFORMATION
  Report Type: Spontaneous
  Country: US (occurrence: US)
  Receive Date: 20180511
  Receipt Date: 20180511
  Transmission Date: 20180711
  Serious: Yes (Other)
  Sender: FDA-Public Use
  Company Number: US-SA-2018SA124966

PATIENT

DRUGS (2)
  1. MENTHOL. [Suspect]
     Active Substance: MENTHOL
     Route: 061
  2. METHYL SALICYLATE [Suspect]
     Active Substance: METHYL SALICYLATE
     Route: 061

REACTIONS (3)
  - Muscle necrosis [Unknown]
  - Tubulointerstitial nephritis [Unknown]
  - Skin necrosis [Unknown]
